FAERS Safety Report 6181105-4 (Version None)
Quarter: 2009Q2

REPORT INFORMATION
  Report Type: 
  Country: None (occurrence: None)
  Receive Date: 20090501
  Receipt Date: 20090123
  Transmission Date: 20091009
  Serious: Yes (Life-Threatening, Hospitalization)
  Sender: FDA-Public Use
  Company Number: US025144

PATIENT
  Age: 63 Year
  Sex: Male

DRUGS (1)
  1. TREANDA [Suspect]
     Indication: CHRONIC LYMPHOCYTIC LEUKAEMIA
     Dosage: (100 MG/M2, DAYS 1 AND 2 EVERY 4 WEEKS) , INTRAVENOUS
     Route: 042
     Dates: start: 20080101

REACTIONS (2)
  - HAEMOLYTIC ANAEMIA [None]
  - RHEUMATOID ARTHRITIS [None]
